FAERS Safety Report 7462236 (Version 4)
Quarter: 2013Q2

REPORT INFORMATION
  Report Type: Spontaneous
  Country: CA (occurrence: CA)
  Receive Date: 20100709
  Receipt Date: 20130614
  Transmission Date: 20140414
  Serious: Yes (Hospitalization)
  Sender: FDA-Public Use
  Company Number: CA-ROCHE-GNE303759

PATIENT
  Age: 60 Year
  Sex: Female

DRUGS (1)
  1. XOLAIR [Suspect]
     Indication: ASTHMA
     Route: 058
     Dates: start: 20090421

REACTIONS (5)
  - Pneumonia [Unknown]
  - Tremor [Unknown]
  - Cough [Unknown]
  - Productive cough [Unknown]
  - Bronchitis [Recovered/Resolved]
